FAERS Safety Report 7908046-3 (Version None)
Quarter: 2011Q4

REPORT INFORMATION
  Report Type: 
  Country: None (occurrence: None)
  Receive Date: 20111110
  Receipt Date: 20111109
  Transmission Date: 20120403
  Serious: Yes (Hospitalization)
  Sender: FDA-Public Use
  Company Number: US-BRISTOL-MYERS SQUIBB COMPANY-15222631

PATIENT
  Age: 68 Year
  Sex: Female
  Weight: 58 kg

DRUGS (3)
  1. LOMOTIL [Concomitant]
     Dosage: 1DF=2TABS
  2. PREDNISONE TAB [Concomitant]
     Dosage: ALSO 10MG
     Route: 048
  3. IPILIMUMAB [Suspect]
     Indication: MALIGNANT MELANOMA
     Dosage: NO.OF COURSES:2
     Route: 042
     Dates: start: 20100610, end: 20100722

REACTIONS (2)
  - INFECTION [None]
  - DIARRHOEA [None]
